FAERS Safety Report 7358001-X (Version None)
Quarter: 2011Q1

REPORT INFORMATION
  Report Type: 
  Country: None (occurrence: None)
  Receive Date: 20110307
  Receipt Date: 20100625
  Transmission Date: 20110831
  Serious: No
  Sender: FDA-Public Use
  Company Number: AEUSA201000237

PATIENT
  Age: 51 Year
  Sex: Female

DRUGS (8)
  1. PREMARIN [Concomitant]
  2. PROLASTIN-C [Suspect]
     Indication: ALPHA-1 ANTI-TRYPSIN DEFICIENCY
     Dosage: 5 GM;QW;IV
     Route: 042
     Dates: start: 20100501
  3. BETOPTIC [Concomitant]
  4. TYLENOL (CAPLET) [Concomitant]
  5. PULMICORT [Concomitant]
  6. XOPENEX [Concomitant]
  7. PROLASTIN [Suspect]
     Indication: ALPHA-1 ANTI-TRYPSIN DEFICIENCY
     Dosage: IV
     Route: 042
     Dates: start: 19970101, end: 20100101
  8. SPIRIVA [Concomitant]

REACTIONS (3)
  - INFLUENZA LIKE ILLNESS [None]
  - INFUSION RELATED REACTION [None]
  - MIGRAINE [None]
